FAERS Safety Report 8558832-4 (Version None)
Quarter: 2012Q3

REPORT INFORMATION
  Report Type: 
  Country: None (occurrence: None)
  Receive Date: 20120801
  Receipt Date: 20120724
  Transmission Date: 20120928
  Serious: Yes (Other)
  Sender: FDA-Public Use
  Company Number: GB-TEVA-350259ISR

PATIENT
  Age: 84 Year
  Sex: Female
  Weight: 81 kg

DRUGS (6)
  1. LANSOPRAZOLE [Concomitant]
     Indication: DYSPEPSIA
     Route: 048
     Dates: start: 20000101
  2. ANASTROZOLE [Suspect]
     Indication: BREAST CANCER
     Route: 048
     Dates: start: 20120621, end: 20120626
  3. SENNA-MINT WAF [Concomitant]
  4. CITALOPRAM HYDROBROMIDE [Concomitant]
     Indication: DEPRESSION
     Route: 048
     Dates: start: 20120111
  5. LACTULOSE [Concomitant]
  6. VALSARTAN [Concomitant]
     Indication: HYPERTENSION
     Route: 048
     Dates: start: 20020920

REACTIONS (1)
  - HALLUCINATION, VISUAL [None]
